FAERS Safety Report 12909059 (Version 1)
Quarter: 2016Q4

REPORT INFORMATION
  Report Type: Spontaneous
  Country: US (occurrence: US)
  Receive Date: 20161103
  Receipt Date: 20161103
  Transmission Date: 20170207
  Serious: No
  Sender: FDA-Public Use
  Company Number: US-JAZZ-2016-US-017000

PATIENT
  Age: 53 Year
  Sex: Female

DRUGS (22)
  1. XYREM [Suspect]
     Active Substance: SODIUM OXYBATE
     Indication: CATAPLEXY
     Dosage: 3.75 G, BID
     Route: 048
     Dates: start: 2016
  2. FIORICET [Concomitant]
     Active Substance: ACETAMINOPHEN\BUTALBITAL\CAFFEINE
  3. REGLAN [Concomitant]
     Active Substance: METOCLOPRAMIDE HYDROCHLORIDE
  4. LEVSIN [Concomitant]
     Active Substance: HYOSCYAMINE SULFATE
  5. BENADRYL [Concomitant]
     Active Substance: DIPHENHYDRAMINE HYDROCHLORIDE
  6. XYREM [Suspect]
     Active Substance: SODIUM OXYBATE
     Indication: NARCOLEPSY
     Dosage: 2.25 G, BID
     Route: 048
     Dates: start: 201605, end: 2016
  7. TOPAMAX [Concomitant]
     Active Substance: TOPIRAMATE
  8. VITAMIN D2 [Concomitant]
     Active Substance: ERGOCALCIFEROL
  9. MIRALAX [Concomitant]
     Active Substance: POLYETHYLENE GLYCOL 3350
  10. METHYLPHENIDATE. [Concomitant]
     Active Substance: METHYLPHENIDATE
  11. VERAPAMIL [Concomitant]
     Active Substance: VERAPAMIL HYDROCHLORIDE
  12. FAMOTIDINE. [Concomitant]
     Active Substance: FAMOTIDINE
  13. NORVASC [Concomitant]
     Active Substance: AMLODIPINE BESYLATE
  14. TIROSINT [Concomitant]
     Active Substance: LEVOTHYROXINE SODIUM
  15. ALLEGRA ALLERGY [Concomitant]
     Active Substance: FEXOFENADINE HYDROCHLORIDE
  16. NASONEX [Concomitant]
     Active Substance: MOMETASONE FUROATE
  17. ZYRTEC [Concomitant]
     Active Substance: CETIRIZINE HYDROCHLORIDE
  18. FLORICAL [Concomitant]
     Active Substance: DIETARY SUPPLEMENT
  19. CLOBETASOL [Concomitant]
     Active Substance: CLOBETASOL
  20. PATANOL [Concomitant]
     Active Substance: OLOPATADINE HYDROCHLORIDE
  21. FLEXERIL [Concomitant]
     Active Substance: CYCLOBENZAPRINE HYDROCHLORIDE
  22. HYDROCORTISONE. [Concomitant]
     Active Substance: HYDROCORTISONE

REACTIONS (2)
  - Arthropod bite [Unknown]
  - Dermatitis contact [Unknown]

NARRATIVE: CASE EVENT DATE: 201608
